FAERS Safety Report 4726557-9 (Version None)
Quarter: 2005Q3

REPORT INFORMATION
  Report Type: 
  Country: None (occurrence: None)
  Receive Date: 20050726
  Receipt Date: 20050708
  Transmission Date: 20060218
  Serious: Yes (Other)
  Sender: FDA-Public Use
  Company Number: 2005099402

PATIENT

DRUGS (1)
  1. VORICONAZOLE (VORICONAZOLE) [Suspect]
     Indication: ASPERGILLOSIS

REACTIONS (1)
  - NEUROTOXICITY [None]
